FAERS Safety Report 22328086 (Version 1)
Quarter: 2023Q2

REPORT INFORMATION
  Report Type: Report from Study
  Country: IE (occurrence: None)
  Receive Date: 20230516
  Receipt Date: 20230516
  Transmission Date: 20230721
  Serious: Yes (Hospitalization, Other)
  Sender: FDA-Public Use
  Company Number: IE-Merck LLC-9402167

PATIENT
  Sex: Female

DRUGS (2)
  1. MAVENCLAD [Suspect]
     Active Substance: CLADRIBINE
     Indication: Relapsing-remitting multiple sclerosis
     Dosage: YEAR ONE WEEK ONE THERAPY: TWO DOSAGE FORMS ON DAYS 1 TO 2 AND ONE DOSAGE FORM ON DAYS 3 TO 5
     Route: 048
     Dates: start: 20221114
  2. MAVENCLAD [Suspect]
     Active Substance: CLADRIBINE
     Dosage: YEAR ONE WEEK FIVE THERAPY: TWO DOSAGE FORMS ON DAYS 1 TO 2 AND ONE DOSAGE FORM ON DAYS 3 TO 5
     Route: 048
     Dates: start: 20221212

REACTIONS (4)
  - Malaise [Recovered/Resolved]
  - Chest pain [Recovered/Resolved]
  - Hypertension [Recovered/Resolved]
  - Facial paralysis [Recovered/Resolved]
